FAERS Safety Report 20197403 (Version 1)
Quarter: 2021Q4

REPORT INFORMATION
  Report Type: Spontaneous
  Country: CA (occurrence: CA)
  Receive Date: 20211217
  Receipt Date: 20211217
  Transmission Date: 20220303
  Serious: Yes (Other)
  Sender: FDA-Public Use
  Company Number: CA-JNJFOC-20211222312

PATIENT
  Age: 29 Year
  Sex: Male

DRUGS (7)
  1. RISPERDAL [Suspect]
     Active Substance: RISPERIDONE
     Indication: Schizophrenia
     Route: 048
  2. LAMICTAL [Suspect]
     Active Substance: LAMOTRIGINE
     Indication: Schizophrenia
     Route: 048
  3. CLOZAPINE [Suspect]
     Active Substance: CLOZAPINE
     Indication: Schizophrenia
     Route: 048
  4. CLOZAPINE [Suspect]
     Active Substance: CLOZAPINE
     Route: 048
  5. BENZOCAINE [Concomitant]
     Active Substance: BENZOCAINE
     Route: 061
  6. ISOPTO ATROPINE [Concomitant]
     Active Substance: ATROPINE SULFATE
     Route: 060
  7. ISOPTO TEARS [HYPROMELLOSE] [Concomitant]
     Route: 047

REACTIONS (3)
  - Thrombocytopenia [Unknown]
  - Gilbert^s syndrome [Unknown]
  - Drug level decreased [Unknown]
